FAERS Safety Report 5367260-4 (Version None)
Quarter: 2007Q2

REPORT INFORMATION
  Report Type: 
  Country: None (occurrence: None)
  Receive Date: 20070620
  Receipt Date: 20070620
  Transmission Date: 20071010
  Serious: Yes (Other)
  Sender: FDA-Public Use
  Company Number: None

PATIENT
  Age: 43 Year
  Sex: Female
  Weight: 53.5244 kg

DRUGS (1)
  1. ZANFEL ZANFEL LABORATORIES [Suspect]
     Indication: DERMATITIS CONTACT
     Dosage: CREAM AS NEEDED CONTACT 2 TIMES
     Dates: start: 20070604

REACTIONS (1)
  - SCAR [None]
